FAERS Safety Report 9115254 (Version 1)
Quarter: 2013Q1

REPORT INFORMATION
  Report Type: Spontaneous
  Country: US (occurrence: US)
  Receive Date: 20130225
  Receipt Date: 20130225
  Transmission Date: 20140127
  Serious: Yes (Hospitalization)
  Sender: FDA-Public Use
  Company Number: US-ASTRAZENECA-2009SE28832

PATIENT
  Age: 72 Year
  Sex: Female
  Weight: 90.7 kg

DRUGS (16)
  1. SYMBICORT [Suspect]
     Indication: CHRONIC OBSTRUCTIVE PULMONARY DISEASE
     Dosage: 80/4.5, 2 PUFFS, BID
     Route: 055
     Dates: end: 201204
  2. SYMBICORT [Suspect]
     Indication: CHRONIC OBSTRUCTIVE PULMONARY DISEASE
     Dosage: 160/4.5, 2 PUFFS, BID
     Route: 055
     Dates: start: 201204
  3. NORVASC [Concomitant]
     Indication: BLOOD PRESSURE ABNORMAL
     Route: 048
  4. SPIRIVA INHALER [Concomitant]
     Indication: CHRONIC OBSTRUCTIVE PULMONARY DISEASE
     Dosage: ONE PUFF DAILY
     Route: 055
  5. PREDNISONE [Concomitant]
     Indication: CHRONIC OBSTRUCTIVE PULMONARY DISEASE
  6. ANTIBIOTICS [Concomitant]
  7. FOSAMAX [Concomitant]
  8. ALPRAZOLAM [Concomitant]
  9. SINGULAIR [Concomitant]
  10. ALBUTEROL NEB [Concomitant]
  11. MUCINEX [Concomitant]
  12. OMEPRAZOLE [Concomitant]
  13. ASPIRIN [Concomitant]
  14. FUROSEMIDE [Concomitant]
  15. LORATIDINE [Concomitant]
  16. PRAVACHOL [Concomitant]

REACTIONS (5)
  - Lung neoplasm malignant [Unknown]
  - Weight increased [Unknown]
  - Oral candidiasis [Unknown]
  - Adrenal suppression [Unknown]
  - Drug ineffective [Unknown]
